FAERS Safety Report 11625625 (Version 1)
Quarter: 2015Q4

REPORT INFORMATION
  Report Type: Spontaneous
  Country: BR (occurrence: BR)
  Receive Date: 20151013
  Receipt Date: 20151013
  Transmission Date: 20160304
  Serious: Yes (Other)
  Sender: FDA-Public Use
  Company Number: BR-JNJFOC-20151006899

PATIENT
  Age: 62 Year
  Sex: Female

DRUGS (3)
  1. REMICADE [Suspect]
     Active Substance: INFLIXIMAB
     Indication: CROHN^S DISEASE
     Route: 042
  2. WARFARIN [Concomitant]
     Active Substance: WARFARIN
     Route: 065
  3. AZATHIOPRINE. [Suspect]
     Active Substance: AZATHIOPRINE
     Indication: PRODUCT USED FOR UNKNOWN INDICATION
     Route: 065

REACTIONS (5)
  - Sputum culture positive [Unknown]
  - Lung infiltration [Unknown]
  - Rash papular [Unknown]
  - Hodgkin^s disease [Recovered/Resolved]
  - Metastatic cutaneous Crohn^s disease [Recovering/Resolving]

NARRATIVE: CASE EVENT DATE: 201003
